FAERS Safety Report 13582018 (Version 2)
Quarter: 2018Q2

REPORT INFORMATION
  Report Type: Spontaneous
  Country: JP (occurrence: JP)
  Receive Date: 20170525
  Receipt Date: 20180424
  Transmission Date: 20180711
  Serious: Yes (Death, Hospitalization, Other)
  Sender: FDA-Public Use
  Company Number: JP-PFIZER INC-2017228060

PATIENT
  Age: 72 Year
  Sex: Male

DRUGS (2)
  1. ZYVOX [Suspect]
     Active Substance: LINEZOLID
     Indication: STAPHYLOCOCCAL INFECTION
     Dosage: UNK
  2. ZYVOX [Suspect]
     Active Substance: LINEZOLID
     Indication: STAPHYLOCOCCAL INFECTION
     Dosage: UNK
     Route: 048

REACTIONS (9)
  - Shock [Unknown]
  - Fungal infection [Fatal]
  - Pyrexia [Unknown]
  - Extradural abscess [Unknown]
  - Intervertebral discitis [Unknown]
  - Drug ineffective [Unknown]
  - Altered state of consciousness [Unknown]
  - Infective spondylitis [Unknown]
  - Muscle abscess [Unknown]
